FAERS Safety Report 8932701 (Version 1)
Quarter: 2012Q4

REPORT INFORMATION
  Report Type: 
  Country: US (occurrence: US)
  Receive Date: 20121129
  Receipt Date: 20121129
  Transmission Date: 20130627
  Serious: No
  Sender: FDA-Public Use
  Company Number: US-009507513-1211USA012010

PATIENT
  Sex: Male

DRUGS (2)
  1. LOTRIMIN ULTRA [Suspect]
     Indication: TINEA CAPITIS
     Dosage: UNK, tid
     Route: 061
  2. LOTRIMIN ULTRA [Suspect]
     Dosage: UNK, qid
     Route: 061

REACTIONS (1)
  - Erythema [Unknown]
